FAERS Safety Report 8896501 (Version 1)
Quarter: 2012Q4

REPORT INFORMATION
  Report Type: 
  Country: ES (occurrence: ES)
  Receive Date: 20121108
  Receipt Date: 20121108
  Transmission Date: 20130627
  Serious: Yes (Other)
  Sender: FDA-Public Use
  Company Number: ES-TEVA-367220ISR

PATIENT
  Age: 51 Year
  Sex: Female

DRUGS (6)
  1. RIBAVIRIN [Suspect]
     Indication: HEPATITIS C
     Dosage: 400 Milligram Daily;
     Route: 048
     Dates: start: 20111222, end: 20120619
  2. PEGINTRON [Suspect]
     Indication: HEPATITIS C
     Dosage: 7.1429 Microgram Daily;
     Route: 065
     Dates: start: 20111222, end: 20120619
  3. DACORTIN [Concomitant]
     Indication: LIVER TRANSPLANT
     Dosage: 2.5 Milligram Daily;
     Route: 048
  4. LEXATIN [Concomitant]
     Indication: ANXIETY
     Dosage: 1.5 Milligram Daily;
     Route: 048
  5. LOPID [Concomitant]
     Indication: DYSLIPIDAEMIA
     Dosage: 900 Milligram Daily;
     Route: 048
     Dates: end: 20120619
  6. SANDIMMUN NEORAL 25 MG CAPSULAS BLANDAS, 30 CAPSULAS [Concomitant]
     Indication: LIVER TRANSPLANT
     Dosage: 50 Milligram Daily;
     Route: 048

REACTIONS (3)
  - Asthenia [Recovered/Resolved]
  - Chorea [Recovered/Resolved]
  - Feeling abnormal [Recovering/Resolving]
